FAERS Safety Report 18832417 (Version 1)
Quarter: 2021Q1

REPORT INFORMATION
  Report Type: Spontaneous
  Country: US (occurrence: US)
  Receive Date: 20210203
  Receipt Date: 20210203
  Transmission Date: 20210419
  Serious: Yes (Other)
  Sender: FDA-Public Use
  Company Number: None

PATIENT
  Age: 60 Year
  Sex: Female
  Weight: 99.79 kg

DRUGS (3)
  1. TRAZODONE [Concomitant]
     Active Substance: TRAZODONE HYDROCHLORIDE
  2. BUPROPION SR 200MG [Suspect]
     Active Substance: BUPROPION
  3. DULOXETINE 30MG [Suspect]
     Active Substance: DULOXETINE
     Indication: MAJOR DEPRESSION

REACTIONS (3)
  - Product substitution issue [None]
  - Suicidal ideation [None]
  - Mood altered [None]

NARRATIVE: CASE EVENT DATE: 20191219
